FAERS Safety Report 19205782 (Version 1)
Quarter: 2021Q2

REPORT INFORMATION
  Report Type: Spontaneous
  Country: US (occurrence: US)
  Receive Date: 20210503
  Receipt Date: 20210503
  Transmission Date: 20210717
  Serious: No
  Sender: FDA-Public Use
  Company Number: US-FARMAPROD-202103-0302

PATIENT
  Sex: Female

DRUGS (5)
  1. OXERVATE [Suspect]
     Active Substance: CENEGERMIN-BKBJ
     Indication: KERATITIS
     Route: 047
     Dates: start: 20210201
  2. OXERVATE [Suspect]
     Active Substance: CENEGERMIN-BKBJ
     Indication: OPHTHALMIC HERPES ZOSTER
  3. PERPHENAZINE. [Concomitant]
     Active Substance: PERPHENAZINE
  4. RESTASIS [Concomitant]
     Active Substance: CYCLOSPORINE
     Dosage: DROPERETTE
  5. CLONAZEPAM. [Concomitant]
     Active Substance: CLONAZEPAM

REACTIONS (3)
  - Ocular discomfort [Unknown]
  - Headache [Unknown]
  - Eye pain [Unknown]
